FAERS Safety Report 15398452 (Version 1)
Quarter: 2018Q3

REPORT INFORMATION
  Report Type: Spontaneous
  Country: US (occurrence: US)
  Receive Date: 20180918
  Receipt Date: 20180918
  Transmission Date: 20181010
  Serious: No
  Sender: FDA-Public Use
  Company Number: US-ACTELION-A-US2018-177268

PATIENT
  Age: 64 Year
  Sex: Female

DRUGS (1)
  1. OPSUMIT [Suspect]
     Active Substance: MACITENTAN
     Indication: PULMONARY ARTERIAL HYPERTENSION
     Dosage: 10 MG, QD
     Route: 048
     Dates: start: 20180711, end: 201808

REACTIONS (9)
  - Cardiac failure [Unknown]
  - Condition aggravated [Unknown]
  - Blister [Unknown]
  - Headache [Unknown]
  - Fluid retention [Unknown]
  - Swelling [Unknown]
  - Skin tightness [Unknown]
  - Oedema peripheral [Unknown]
  - Weight increased [Unknown]

NARRATIVE: CASE EVENT DATE: 20180711
